FAERS Safety Report 9830483 (Version 2)
Quarter: 2014Q1

REPORT INFORMATION
  Report Type: Spontaneous
  Country: JP (occurrence: JP)
  Receive Date: 20140120
  Receipt Date: 20140122
  Transmission Date: 20141002
  Serious: Yes (Hospitalization)
  Sender: FDA-Public Use
  Company Number: JP-GLAXOSMITHKLINE-B0959933A

PATIENT
  Age: 76 Year
  Sex: Male

DRUGS (4)
  1. SERETIDE (50MCG/250MCG) [Suspect]
     Indication: CHRONIC OBSTRUCTIVE PULMONARY DISEASE
     Route: 055
     Dates: start: 20131224, end: 20140107
  2. THEODUR [Concomitant]
     Route: 048
  3. SPIRIVA [Concomitant]
     Route: 055
  4. UNKNOWN DRUG [Concomitant]
     Route: 065

REACTIONS (2)
  - Pneumonia [Unknown]
  - Dysgeusia [Recovered/Resolved]
